FAERS Safety Report 7265558-6 (Version None)
Quarter: 2011Q1

REPORT INFORMATION
  Report Type: 
  Country: None (occurrence: None)
  Receive Date: 20110119
  Receipt Date: 20110111
  Transmission Date: 20110831
  Serious: Yes (Hospitalization)
  Sender: FDA-Public Use
  Company Number: 2010SP059759

PATIENT
  Age: 35 Year
  Sex: Female
  Weight: 92.5338 kg

DRUGS (16)
  1. PRENATAL VITAMINS [Concomitant]
  2. BLINDED CORIFOLLOTROPIN ALFA [Suspect]
     Indication: ASSISTED FERTILISATION
     Dosage: 150 MCG; ONCE; SC
     Route: 058
     Dates: start: 20101018, end: 20101018
  3. GANIRELIX ACETATE INJECTION [Suspect]
     Indication: PRODUCT USED FOR UNKNOWN INDICATION
     Dosage: 0.25 MG; QD
     Dates: start: 20101022, end: 20101028
  4. LIDEX [Concomitant]
  5. LACTATED RINGER'S [Concomitant]
  6. BENADRYL [Concomitant]
  7. CLARITIN [Concomitant]
  8. BLINDED CORIFOLLITROPIN ALFA [Suspect]
     Indication: PRODUCT USED FOR UNKNOWN INDICATION
     Dosage: 300 IU; QD
     Dates: start: 20101018, end: 20101027
  9. VERSED [Concomitant]
  10. FOLLISTIM AQ [Suspect]
     Indication: PRODUCT USED FOR UNKNOWN INDICATION
     Dosage: 300 IU
     Dates: start: 20101026, end: 20101026
  11. DIPRIVAN [Concomitant]
  12. OVIDREL [Suspect]
     Indication: ASSISTED FERTILISATION
     Dosage: 250 MCG; ONCE
     Dates: start: 20101028, end: 20101028
  13. CRINONE [Concomitant]
  14. TYLENOL-500 [Concomitant]
  15. DOXYCYCLINE [Concomitant]
  16. FENTANYL [Concomitant]

REACTIONS (2)
  - PLEURAL EFFUSION [None]
  - OVARIAN HYPERSTIMULATION SYNDROME [None]
